FAERS Safety Report 17483481 (Version 2)
Quarter: 2020Q1

REPORT INFORMATION
  Report Type: Spontaneous
  Country: US (occurrence: US)
  Receive Date: 20200302
  Receipt Date: 20200313
  Transmission Date: 20200409
  Serious: Yes (Hospitalization)
  Sender: FDA-Public Use
  Company Number: US-GW PHARMA-202002USGW00760

PATIENT

DRUGS (8)
  1. EPIDIOLEX [Suspect]
     Active Substance: CANNABIDIOL
     Dosage: 8 MG/KG/DAY, 150 MILLIGRAM, BID
     Route: 048
     Dates: start: 2019, end: 201905
  2. LAMOTRIGINE. [Concomitant]
     Active Substance: LAMOTRIGINE
     Indication: PRODUCT USED FOR UNKNOWN INDICATION
     Dosage: 100 MILLIGRAM, BID
     Route: 065
  3. EPIDIOLEX [Suspect]
     Active Substance: CANNABIDIOL
     Dosage: 12 MG/KG/DAY, 230 MILLIGRAM, BID
     Route: 048
     Dates: start: 2019, end: 20191115
  4. TOPIRAMATE. [Concomitant]
     Active Substance: TOPIRAMATE
     Indication: PRODUCT USED FOR UNKNOWN INDICATION
     Dosage: 250 MILLIGRAM, BID
     Route: 065
  5. APTIOM [Concomitant]
     Active Substance: ESLICARBAZEPINE ACETATE
     Indication: PRODUCT USED FOR UNKNOWN INDICATION
     Dosage: 800 MILLIGRAM, BID
     Route: 065
  6. EPIDIOLEX [Suspect]
     Active Substance: CANNABIDIOL
     Indication: LENNOX-GASTAUT SYNDROME
     Dosage: 4 MG/KG/DAY, 100 MILLIGRAM, BID
     Route: 048
     Dates: start: 20190301, end: 201903
  7. EPIDIOLEX [Suspect]
     Active Substance: CANNABIDIOL
     Dosage: 8 MG/KG/DAY, 150 MILLIGRAM, BID
     Route: 048
     Dates: start: 201903, end: 2019
  8. EPIDIOLEX [Suspect]
     Active Substance: CANNABIDIOL
     Dosage: 12 MG/KG/DAY, 230 MILLIGRAM, BID
     Route: 048
     Dates: start: 201904, end: 2019

REACTIONS (7)
  - Blood sodium abnormal [Unknown]
  - Weight decreased [Recovering/Resolving]
  - Diarrhoea [Recovering/Resolving]
  - Nausea [Recovered/Resolved]
  - Vomiting [Recovered/Resolved]
  - Blood potassium abnormal [Unknown]
  - Seizure [Recovering/Resolving]

NARRATIVE: CASE EVENT DATE: 2019
